FAERS Safety Report 4279601-X (Version None)
Quarter: 2004Q1

REPORT INFORMATION
  Report Type: 
  Country: None (occurrence: None)
  Receive Date: 20040123
  Receipt Date: 20040116
  Transmission Date: 20041129
  Serious: Yes (Hospitalization)
  Sender: FDA-Public Use
  Company Number: TCI2004A00175

PATIENT
  Age: 67 Year
  Sex: Female

DRUGS (1)
  1. ACTOS [Suspect]
     Dosage: 15 MG (15 MG 1 D) PER ORAL
     Route: 048

REACTIONS (2)
  - PLEURAL EFFUSION [None]
  - PNEUMONIA MYCOPLASMAL [None]
